APPROVED DRUG PRODUCT: NEMBUTAL SODIUM
Active Ingredient: PENTOBARBITAL SODIUM
Strength: 50MG/ML
Dosage Form/Route: INJECTABLE;INJECTION
Application: A083246 | Product #001 | TE Code: AP
Applicant: RISING PHARMA HOLDINGS INC
Approved: Approved Prior to Jan 1, 1982 | RLD: Yes | RS: Yes | Type: RX